FAERS Safety Report 5281592-X (Version None)
Quarter: 2007Q1

REPORT INFORMATION
  Report Type: 
  Country: None (occurrence: None)
  Receive Date: 20061222
  Receipt Date: 20061030
  Transmission Date: 20070707
  Serious: Yes (Other)
  Sender: FDA-Public Use
  Company Number: 2006-0010516

PATIENT
  Age: 55 Year
  Sex: Male
  Weight: 82.4639 kg

DRUGS (7)
  1. VIREAD [Suspect]
     Indication: HIV INFECTION
     Dosage: 300 MG, 1 IN 1 D, ORAL
     Route: 048
     Dates: start: 20020101, end: 20060701
  2. KALETRA [Concomitant]
  3. NEURONTIN [Concomitant]
  4. AMITRIPTYLINE HCL [Concomitant]
  5. MS CONTIN [Concomitant]
  6. CLONAZEPAM [Concomitant]
  7. IBUPROFEN [Concomitant]

REACTIONS (1)
  - FANCONI SYNDROME ACQUIRED [None]
